FAERS Safety Report 25800338 (Version 1)
Quarter: 2025Q3

REPORT INFORMATION
  Report Type: Spontaneous
  Country: US (occurrence: US)
  Receive Date: 20250915
  Receipt Date: 20250915
  Transmission Date: 20251021
  Serious: No
  Sender: ABBVIE
  Company Number: US-ABBVIE-6450174

PATIENT
  Age: 71 Year
  Sex: Female
  Weight: 78 kg

DRUGS (1)
  1. ESTRADIOL [Suspect]
     Active Substance: ESTRADIOL
     Indication: Vulvovaginal dryness
     Dosage: ESTRADIOL VAGINAL CREAM USP 0.01%?FORM STRENGTH: 0.01 MILLIGRAM?(ESTRADIOL 0.01% CRM (TBD)
     Route: 067
     Dates: start: 2019

REACTIONS (2)
  - Vulvovaginal pruritus [Recovered/Resolved]
  - Product physical consistency issue [Not Recovered/Not Resolved]

NARRATIVE: CASE EVENT DATE: 20250801
